FAERS Safety Report 4965667-8 (Version None)
Quarter: 2006Q2

REPORT INFORMATION
  Report Type: 
  Country: None (occurrence: None)
  Receive Date: 20060407
  Receipt Date: 20060314
  Transmission Date: 20061013
  Serious: Yes (Death, Hospitalization)
  Sender: FDA-Public Use
  Company Number: DE-ABBOTT-06P-062-0328276-00

PATIENT
  Sex: Male

DRUGS (13)
  1. KALETRA [Suspect]
     Indication: HIV INFECTION
     Route: 048
     Dates: start: 20050222, end: 20050801
  2. KALETRA [Suspect]
     Indication: ACQUIRED IMMUNODEFICIENCY SYNDROME
     Dates: start: 20050801, end: 20051201
  3. VIREAD [Suspect]
     Indication: HIV INFECTION
     Dates: start: 20050222
  4. VIREAD [Suspect]
     Indication: ACQUIRED IMMUNODEFICIENCY SYNDROME
  5. LAMIVUDINE [Concomitant]
     Indication: HIV INFECTION
     Dates: start: 20050222, end: 20050804
  6. LAMIVUDINE [Concomitant]
     Indication: ACQUIRED IMMUNODEFICIENCY SYNDROME
     Dates: start: 20050801
  7. ISONIAZID [Concomitant]
     Indication: TUBERCULOSIS
  8. RIFABUTIN [Concomitant]
     Indication: TUBERCULOSIS
  9. ETHAMBUTOL DIHYDROCHLORIDE [Concomitant]
     Indication: TUBERCULOSIS
  10. PYRAZINAMIDE [Concomitant]
     Indication: TUBERCULOSIS
  11. ABACAVIR SULFATE [Concomitant]
     Indication: HIV INFECTION
     Dates: start: 20050801
  12. ABACAVIR SULFATE [Concomitant]
     Indication: ACQUIRED IMMUNODEFICIENCY SYNDROME
  13. CORTICOID THERAPY [Concomitant]
     Indication: DRUG USE FOR UNKNOWN INDICATION

REACTIONS (2)
  - DEATH [None]
  - RENAL FAILURE [None]
